FAERS Safety Report 6788446-8 (Version None)
Quarter: 2010Q2

REPORT INFORMATION
  Report Type: 
  Country: None (occurrence: None)
  Receive Date: 20100623
  Receipt Date: 20080307
  Transmission Date: 20101027
  Serious: Yes (Other)
  Sender: FDA-Public Use
  Company Number: US-PFIZER INC-2008021708

PATIENT

DRUGS (1)
  1. SUTENT [Suspect]

REACTIONS (1)
  - CARDIAC FAILURE CONGESTIVE [None]
